FAERS Safety Report 8174529-7 (Version None)
Quarter: 2012Q1

REPORT INFORMATION
  Report Type: 
  Country: None (occurrence: None)
  Receive Date: 20120229
  Receipt Date: 20120224
  Transmission Date: 20120608
  Serious: Yes (Death, Life-Threatening, Other)
  Sender: FDA-Public Use
  Company Number: FR-PFIZER INC-2012048970

PATIENT
  Age: 66 Year
  Sex: Male

DRUGS (12)
  1. PAROXETINE HYDROCHLORIDE [Suspect]
     Dosage: UNK
     Route: 048
     Dates: start: 20120112, end: 20120118
  2. TRACLEER [Suspect]
     Dosage: UNK
     Route: 048
     Dates: start: 20111129, end: 20120120
  3. XANAX [Suspect]
     Dosage: UNK
     Route: 048
     Dates: start: 20120107, end: 20120118
  4. NEXIUM [Concomitant]
  5. PROSCAR [Suspect]
     Dosage: UNK
     Route: 048
     Dates: start: 20120110, end: 20120118
  6. IMOVANE [Suspect]
     Dosage: 1 DF, 1X/DAY
     Route: 048
     Dates: start: 20111201, end: 20120118
  7. REVATIO [Suspect]
     Dosage: UNK
     Dates: start: 20111123
  8. REVATIO [Suspect]
     Dosage: UNK
     Route: 048
     Dates: start: 20120115, end: 20120120
  9. ALFUZOSIN HCL [Suspect]
     Dosage: UNK
     Route: 048
     Dates: start: 20111208, end: 20120118
  10. PREDNISOLONE [Concomitant]
     Dosage: UNK
     Dates: start: 20111201
  11. IVABRADINE [Concomitant]
     Dosage: UNK
  12. CHIBROXINE [Suspect]
     Dosage: UNK
     Route: 047
     Dates: start: 20111213, end: 20120118

REACTIONS (3)
  - CARDIAC ARREST [None]
  - TOXIC EPIDERMAL NECROLYSIS [None]
  - RESPIRATORY ARREST [None]
